FAERS Safety Report 18415599 (Version 1)
Quarter: 2020Q4

REPORT INFORMATION
  Report Type: Spontaneous
  Country: FR (occurrence: FR)
  Receive Date: 20201022
  Receipt Date: 20201022
  Transmission Date: 20210114
  Serious: Yes (Other)
  Sender: FDA-Public Use
  Company Number: FR-PFIZER INC-2020406025

PATIENT
  Age: 60 Year
  Sex: Female
  Weight: 86 kg

DRUGS (1)
  1. TAHOR [Suspect]
     Active Substance: ATORVASTATIN CALCIUM
     Indication: HYPERLIPIDAEMIA
     Dosage: 80 MG, 1X/DAY
     Route: 048
     Dates: start: 20200726, end: 20200728

REACTIONS (3)
  - Behaviour disorder [Recovered/Resolved]
  - Hallucination, visual [Recovered/Resolved]
  - Delusional perception [Recovered/Resolved]

NARRATIVE: CASE EVENT DATE: 20200726
